FAERS Safety Report 5006719-6 (Version None)
Quarter: 2006Q2

REPORT INFORMATION
  Report Type: 
  Country: None (occurrence: None)
  Receive Date: 20060519
  Receipt Date: 20051103
  Transmission Date: 20061013
  Serious: Yes (Life-Threatening, Hospitalization)
  Sender: FDA-Public Use
  Company Number: AU-MERCK-0511AUS00229

PATIENT
  Age: 77 Year
  Sex: Male

DRUGS (3)
  1. STROMECTOL [Suspect]
     Indication: ACARODERMATITIS
     Route: 048
  2. STROMECTOL [Suspect]
     Route: 048
  3. ZYLOPRIM [Concomitant]
     Indication: GOUT
     Route: 065

REACTIONS (6)
  - CONFUSIONAL STATE [None]
  - DRUG ADMINISTRATION ERROR [None]
  - GAIT DISTURBANCE [None]
  - HYPERCALCAEMIA [None]
  - HYPERTENSION [None]
  - RENAL FAILURE ACUTE [None]
